FAERS Safety Report 25415567 (Version 1)
Quarter: 2025Q2

REPORT INFORMATION
  Report Type: Spontaneous
  Country: US (occurrence: US)
  Receive Date: 20250610
  Receipt Date: 20250610
  Transmission Date: 20250716
  Serious: No
  Sender: ROCHE
  Company Number: US-ROCHE-10000300105

PATIENT
  Sex: Female

DRUGS (1)
  1. ACTEMRA ACTPEN [Suspect]
     Active Substance: TOCILIZUMAB
     Indication: Product used for unknown indication
     Dosage: FORM STRENGTH: 162MG/0.9ML
     Route: 058
     Dates: start: 202504

REACTIONS (2)
  - Haemorrhage [Unknown]
  - Ill-defined disorder [Unknown]
